FAERS Safety Report 7015773-1 (Version None)
Quarter: 2010Q3

REPORT INFORMATION
  Report Type: 
  Country: None (occurrence: None)
  Receive Date: 20100927
  Receipt Date: 20090813
  Transmission Date: 20110219
  Serious: No
  Sender: FDA-Public Use
  Company Number: US-ASTRAZENECA-2009SE07938

PATIENT
  Age: 85 Year
  Sex: Female
  Weight: 60.8 kg

DRUGS (7)
  1. ARIMIDEX [Suspect]
     Route: 048
     Dates: start: 20050101
  2. BENACAR [Concomitant]
  3. LIPITOR [Concomitant]
  4. SYNTHROID [Concomitant]
  5. ACTINOL [Concomitant]
  6. CALTRATE [Concomitant]
  7. ASPIRIN [Concomitant]

REACTIONS (3)
  - FEELING COLD [None]
  - RED BLOOD CELL COUNT DECREASED [None]
  - WHITE BLOOD CELL COUNT DECREASED [None]
